FAERS Safety Report 19958431 (Version 2)
Quarter: 2021Q4

REPORT INFORMATION
  Report Type: Spontaneous
  Country: US (occurrence: US)
  Receive Date: 20211015
  Receipt Date: 20211103
  Transmission Date: 20220304
  Serious: No
  Sender: FDA-Public Use
  Company Number: US-BAYER-2021A226918

PATIENT
  Age: 25 Year
  Sex: Female

DRUGS (1)
  1. MIRENA [Suspect]
     Active Substance: LEVONORGESTREL
     Indication: Contraception
     Dosage: 20?G/DAY
     Route: 015
     Dates: start: 20211001, end: 20211001

REACTIONS (5)
  - Hyperhidrosis [Recovering/Resolving]
  - Complication of device insertion [Recovering/Resolving]
  - Procedural pain [Recovering/Resolving]
  - Procedural dizziness [Recovering/Resolving]
  - Procedural nausea [Recovering/Resolving]

NARRATIVE: CASE EVENT DATE: 20211001
